FAERS Safety Report 5328608-X (Version None)
Quarter: 2007Q2

REPORT INFORMATION
  Report Type: 
  Country: None (occurrence: None)
  Receive Date: 20070514
  Receipt Date: 20070504
  Transmission Date: 20071010
  Serious: Yes (Life-Threatening)
  Sender: FDA-Public Use
  Company Number: PHBS2007ES07637

PATIENT
  Age: 15 Year
  Sex: Male

DRUGS (1)
  1. VISUDYNE [Suspect]
     Indication: RETINITIS HISTOPLASMA
     Dosage: 15 MG DAILY IV
     Route: 042
     Dates: start: 20070427, end: 20070427

REACTIONS (8)
  - ANAPHYLACTIC REACTION [None]
  - BRONCHOSPASM [None]
  - COUGH [None]
  - DYSPNOEA [None]
  - EYELID OEDEMA [None]
  - LARYNGEAL OEDEMA [None]
  - LIP OEDEMA [None]
  - RASH [None]
